FAERS Safety Report 20715506 (Version 1)
Quarter: 2022Q2

REPORT INFORMATION
  Report Type: Spontaneous
  Country: KR (occurrence: KR)
  Receive Date: 20220415
  Receipt Date: 20220415
  Transmission Date: 20220721
  Serious: Yes (Hospitalization)
  Sender: FDA-Public Use
  Company Number: KR-009507513-2102KOR002845

PATIENT
  Age: 75 Year
  Sex: Male
  Weight: 49 kg

DRUGS (13)
  1. KEYTRUDA [Suspect]
     Active Substance: PEMBROLIZUMAB
     Dosage: 2 MG/KG, Q3W
     Route: 042
     Dates: start: 20180808, end: 20180808
  2. KEYTRUDA [Suspect]
     Active Substance: PEMBROLIZUMAB
     Dosage: 2 MG/KG, Q3W
     Route: 042
     Dates: start: 20180830, end: 20180830
  3. MYPOL [CODEINE PHOSPHATE;IBUPROFEN;PARACETAMOL] [Concomitant]
     Indication: Cancer pain
     Dosage: 1 CAPSULE, THREE TIMES A DAY
     Route: 048
     Dates: start: 20180808
  4. LEXAPRO [Concomitant]
     Active Substance: ESCITALOPRAM OXALATE
     Indication: Depression
     Dosage: 10 MILLIGRAM, QD
     Route: 048
     Dates: start: 2018
  5. FENTANYL [Concomitant]
     Active Substance: FENTANYL
     Indication: Cancer pain
     Dosage: 1 PATCH, QD, 2.1 MG/5.25 CM^2, 12 MCG/H
     Route: 062
     Dates: start: 20180809
  6. BROMHEXINE HYDROCHLORIDE [Concomitant]
     Active Substance: BROMHEXINE HYDROCHLORIDE
     Indication: Prophylaxis
     Dosage: 8 MILLIGRAM, TID
     Route: 048
     Dates: start: 20180808
  7. OXYCODONE HYDROCHLORIDE [Concomitant]
     Active Substance: OXYCODONE HYDROCHLORIDE
     Indication: Cancer pain
     Dosage: 10 MILLIGRAM, QD
     Route: 048
     Dates: start: 20180808
  8. NALOXONE HYDROCHLORIDE\OXYCODONE HYDROCHLORIDE [Concomitant]
     Active Substance: NALOXONE HYDROCHLORIDE\OXYCODONE HYDROCHLORIDE
     Indication: Cancer pain
     Dosage: 1 TABLET, BID
     Route: 048
     Dates: start: 20180808
  9. XANAX [Concomitant]
     Active Substance: ALPRAZOLAM
     Indication: Depression
     Dosage: 0.5 MILLIGRAM, BID
     Route: 048
     Dates: start: 20180808
  10. TIANEPTINE [Concomitant]
     Active Substance: TIANEPTINE
     Indication: Depression
     Dosage: 12.5 MILLIGRAM, BID
     Route: 048
     Dates: start: 20180808
  11. LYRICA [Concomitant]
     Active Substance: PREGABALIN
     Indication: Cancer pain
     Dosage: 75 MILLIGRAM, BID
     Route: 048
     Dates: start: 20180808
  12. GASTER [Concomitant]
     Active Substance: FAMOTIDINE
     Indication: Prophylaxis
     Dosage: 20 MILLIGRAM, BID
     Route: 048
     Dates: start: 20180808
  13. SINGULAIR [Concomitant]
     Active Substance: MONTELUKAST SODIUM
     Indication: Emphysema
     Dosage: 10 MILLIGRAM, QD
     Route: 048
     Dates: start: 2018

REACTIONS (3)
  - Large intestine infection [Recovered/Resolved]
  - Vomiting [Recovered/Resolved]
  - Inappropriate schedule of product administration [Unknown]

NARRATIVE: CASE EVENT DATE: 20180830
